FAERS Safety Report 14283029 (Version 1)
Quarter: 2017Q4

REPORT INFORMATION
  Report Type: Report from Study
  Country: FR (occurrence: FR)
  Receive Date: 20171213
  Receipt Date: 20171213
  Transmission Date: 20180321
  Serious: Yes (Life-Threatening, Other)
  Sender: FDA-Public Use
  Company Number: FR-TEVA-2017-FR-829849

PATIENT
  Sex: Female

DRUGS (14)
  1. METHOTREXATE. [Suspect]
     Active Substance: METHOTREXATE
     Indication: ACUTE LYMPHOCYTIC LEUKAEMIA
     Dosage: 15 MG, 1X/DAY:QD
     Route: 037
     Dates: start: 20170828, end: 20170924
  2. VINCRISTINE [Suspect]
     Active Substance: VINCRISTINE
     Dosage: 1.53 MG, 1X/DAY:QD
     Route: 037
     Dates: start: 20170825, end: 20170908
  3. CYCLOPHOSPHAMIDE. [Suspect]
     Active Substance: CYCLOPHOSPHAMIDE
     Indication: ACUTE LYMPHOCYTIC LEUKAEMIA
     Dosage: 1060 MG, 1X/DAY:QD
     Route: 042
     Dates: start: 20170922, end: 20170922
  4. VINCRISTINE [Suspect]
     Active Substance: VINCRISTINE
     Indication: ACUTE LYMPHOCYTIC LEUKAEMIA
     Dosage: 32 MG, 1X/DAY:QD
     Route: 037
     Dates: start: 20170915, end: 20170915
  5. ARACYTINE [Suspect]
     Active Substance: CYTARABINE
     Indication: ACUTE LYMPHOCYTIC LEUKAEMIA
     Dosage: 6 MG, 1X/DAY:QD
     Route: 042
     Dates: start: 20170824, end: 20170924
  6. DOXORUBICIN [Suspect]
     Active Substance: DOXORUBICIN
     Dosage: 30.6 MG, 1X/DAY:QD
     Dates: start: 20170825, end: 20170908
  7. ARACYTINE [Suspect]
     Active Substance: CYTARABINE
     Dosage: 366 MG, UNK
     Route: 042
     Dates: start: 20170924, end: 20170927
  8. DOXORUBICIN [Suspect]
     Active Substance: DOXORUBICIN
     Indication: ACUTE LYMPHOCYTIC LEUKAEMIA
     Dosage: 32 MG, 1X/DAY:QD
     Dates: start: 20170915, end: 20170915
  9. ARACYTINE [Suspect]
     Active Substance: CYTARABINE
     Dosage: 318 MG, UNK
     Route: 042
     Dates: start: 20171001, end: 20171004
  10. ARACYTINE [Suspect]
     Active Substance: CYTARABINE
     Dosage: 30 MG, 1X/DAY:QD
     Route: 042
     Dates: start: 20170828, end: 20170828
  11. DEXAMETHASONE. [Suspect]
     Active Substance: DEXAMETHASONE
     Indication: ACUTE LYMPHOCYTIC LEUKAEMIA
     Dosage: 700 MG, UNK
     Route: 048
     Dates: start: 20170825, end: 20170831
  12. DEXAMETHASONE. [Suspect]
     Active Substance: DEXAMETHASONE
     Dosage: 7000 UNK, UNK
     Route: 048
     Dates: start: 20170908, end: 20170914
  13. PEGASPARGASE [Suspect]
     Active Substance: PEGASPARGASE
     Indication: ACUTE LYMPHOCYTIC LEUKAEMIA
     Dosage: 1275.0 IU, UNK
     Route: 065
     Dates: start: 20170828, end: 20170828
  14. THIOGUANINE [Suspect]
     Active Substance: THIOGUANINE
     Indication: ACUTE LYMPHOCYTIC LEUKAEMIA
     Dosage: 780 MG, UNK
     Route: 042
     Dates: start: 20170922, end: 20171005

REACTIONS (4)
  - Neurotoxicity [Recovered/Resolved with Sequelae]
  - Quadriplegia [Recovered/Resolved with Sequelae]
  - Ischaemic stroke [Recovered/Resolved with Sequelae]
  - Toxicity to various agents [Recovered/Resolved with Sequelae]

NARRATIVE: CASE EVENT DATE: 20171006
